FAERS Safety Report 8416457-5 (Version None)
Quarter: 2012Q2

REPORT INFORMATION
  Report Type: 
  Country: None (occurrence: None)
  Receive Date: 20120530
  Receipt Date: 20120521
  Transmission Date: 20120825
  Serious: Yes (Other)
  Sender: FDA-Public Use
  Company Number: 2012SP019428

PATIENT
  Age: 48 Year
  Sex: Female
  Weight: 70 kg

DRUGS (13)
  1. DEXAMETHASONE [Suspect]
     Indication: PRODUCT USED FOR UNKNOWN INDICATION
     Dosage: 4 MG, BID, PO
     Route: 048
  2. RANITIDINE HYDROCHLORIDE [Suspect]
     Dosage: 50 MG, UNK, IV
     Route: 042
  3. DOCUSATE [Concomitant]
  4. CHLORPHENIRAMINE TAB [Suspect]
     Indication: PRODUCT USED FOR UNKNOWN INDICATION
     Dosage: 10 MG, UNK, IV
     Route: 042
  5. DEXAMETHASONE [Suspect]
     Indication: PRODUCT USED FOR UNKNOWN INDICATION
     Dosage: 20 MG, UNK, IV
     Route: 042
  6. PEGFILGRASTIM (PEGFILGRASTIM) [Suspect]
     Indication: PRODUCT USED FOR UNKNOWN INDICATION
     Dosage: 6 MG, UNK, SC
     Route: 058
  7. GRANISETRON [Suspect]
     Indication: PRODUCT USED FOR UNKNOWN INDICATION
     Dosage: 1 MG, BID, PO
     Route: 048
  8. DOXORUBICIN HCL [Concomitant]
  9. CYCLOPHOSPHAMIDE [Concomitant]
  10. DOMPERIDONE (DOMPERIDONE) [Suspect]
     Indication: PRODUCT USED FOR UNKNOWN INDICATION
     Dosage: 20 MG, UNK, PO
     Route: 048
  11. PACLITAXEL [Suspect]
     Indication: BREAST CANCER
     Dosage: 300;315 MG, QOW, IV
     Route: 042
     Dates: start: 20110524, end: 20110607
  12. PACLITAXEL [Suspect]
     Indication: BREAST CANCER
     Dosage: 300;315 MG, QOW, IV
     Route: 042
     Dates: start: 20110621, end: 20110705
  13. BIOTENE [Concomitant]

REACTIONS (5)
  - DYSPNOEA [None]
  - CHEST PAIN [None]
  - SENSATION OF PRESSURE [None]
  - OBSTRUCTIVE AIRWAYS DISORDER [None]
  - FATIGUE [None]
